FAERS Safety Report 15921190 (Version 1)
Quarter: 2019Q1

REPORT INFORMATION
  Report Type: Report from Study
  Country: FR (occurrence: FR)
  Receive Date: 20190205
  Receipt Date: 20190205
  Transmission Date: 20190417
  Serious: Yes (Other)
  Sender: FDA-Public Use
  Company Number: FR-MYLANLABS-2019M1009473

PATIENT
  Age: 69 Year
  Sex: Female

DRUGS (4)
  1. LATANOPROST. [Suspect]
     Active Substance: LATANOPROST
     Indication: OPEN ANGLE GLAUCOMA
     Dosage: ONCE A DAY
     Route: 061
  2. DORZOLAMIDE [Suspect]
     Active Substance: DORZOLAMIDE
     Indication: OPEN ANGLE GLAUCOMA
     Dosage: TWICE A DAY
     Route: 061
  3. ACETAZOLAMIDE. [Suspect]
     Active Substance: ACETAZOLAMIDE
     Indication: OPEN ANGLE GLAUCOMA
     Dosage: 1/2 X 3
     Route: 048
  4. BRIMONIDINE [Suspect]
     Active Substance: BRIMONIDINE TARTRATE
     Indication: OPEN ANGLE GLAUCOMA
     Dosage: TWICE A DAY
     Route: 061

REACTIONS (5)
  - Ocular surface disease [Recovering/Resolving]
  - Toxicity to various agents [Recovering/Resolving]
  - Open angle glaucoma [Recovering/Resolving]
  - Condition aggravated [Recovering/Resolving]
  - Drug ineffective [Unknown]
